FAERS Safety Report 6087304-4 (Version None)
Quarter: 2009Q1

REPORT INFORMATION
  Report Type: 
  Country: None (occurrence: None)
  Receive Date: 20090223
  Receipt Date: 20090217
  Transmission Date: 20090719
  Serious: Yes (Other)
  Sender: FDA-Public Use
  Company Number: A0768925A

PATIENT
  Age: 68 Year
  Sex: Male

DRUGS (1)
  1. PROPAFENONE HCL [Suspect]
     Indication: ATRIAL FIBRILLATION
     Dosage: 150MG TWICE PER DAY
     Route: 048
     Dates: start: 20070101

REACTIONS (3)
  - ABDOMINAL PAIN [None]
  - ATRIAL FIBRILLATION [None]
  - HEART RATE ABNORMAL [None]
